FAERS Safety Report 7859589-2 (Version None)
Quarter: 2011Q4

REPORT INFORMATION
  Report Type: 
  Country: None (occurrence: None)
  Receive Date: 20111027
  Receipt Date: 20111020
  Transmission Date: 20120403
  Serious: Yes (Other)
  Sender: FDA-Public Use
  Company Number: CN-PFIZER INC-2011260590

PATIENT
  Age: 76 Year
  Sex: Male

DRUGS (2)
  1. PANTOPRAZOLE SODIUM [Suspect]
     Dosage: 80 MG, UNK
     Route: 042
     Dates: start: 20110901
  2. PANTOPRAZOLE SODIUM [Suspect]
     Dosage: 192 MG, (8 MG/HR)
     Route: 042
     Dates: start: 20111015, end: 20111018

REACTIONS (2)
  - RENAL FAILURE [None]
  - BLOOD BILIRUBIN INCREASED [None]
